FAERS Safety Report 12562382 (Version 1)
Quarter: 2016Q3

REPORT INFORMATION
  Report Type: Spontaneous
  Country: GB (occurrence: GB)
  Receive Date: 20160715
  Receipt Date: 20160715
  Transmission Date: 20161109
  Serious: Yes (Disabling)
  Sender: FDA-Public Use
  Company Number: GB-COL_23322_2016

PATIENT
  Age: 40 Year
  Sex: Female

DRUGS (1)
  1. CHLORHEXIDINE [Suspect]
     Active Substance: CHLORHEXIDINE
     Indication: MEDICATION ERROR
     Dosage: NI/NI/
     Route: 008
     Dates: start: 2001

REACTIONS (9)
  - Confusional state [Unknown]
  - Delivery [Unknown]
  - Headache [Unknown]
  - Arachnoiditis [Not Recovered/Not Resolved]
  - Movement disorder [Unknown]
  - Exposure during pregnancy [Unknown]
  - Medication error [Unknown]
  - Diplegia [Not Recovered/Not Resolved]
  - Restlessness [Unknown]

NARRATIVE: CASE EVENT DATE: 2001
